FAERS Safety Report 10577791 (Version 1)
Quarter: 2014Q4

REPORT INFORMATION
  Report Type: Report from Study
  Country: US (occurrence: US)
  Receive Date: 20141111
  Receipt Date: 20141111
  Transmission Date: 20150529
  Serious: No
  Sender: FDA-Public Use
  Company Number: US-AMGEN INC.-USASL2014086652

PATIENT
  Age: 61 Year
  Sex: Male

DRUGS (1)
  1. ENBREL [Suspect]
     Active Substance: ETANERCEPT
     Indication: RHEUMATOID ARTHRITIS
     Dosage: 50 MG, QWK
     Route: 065
     Dates: start: 20131212, end: 201410

REACTIONS (4)
  - No therapeutic response [Not Recovered/Not Resolved]
  - Mobility decreased [Not Recovered/Not Resolved]
  - Gait disturbance [Not Recovered/Not Resolved]
  - Pain [Not Recovered/Not Resolved]
